FAERS Safety Report 12669248 (Version 3)
Quarter: 2023Q2

REPORT INFORMATION
  Report Type: Spontaneous
  Country: BE (occurrence: BE)
  Receive Date: 20160819
  Receipt Date: 20230405
  Transmission Date: 20230722
  Serious: Yes (Other)
  Sender: FDA-Public Use
  Company Number: None

PATIENT
  Age: 55 Year
  Sex: Male

DRUGS (14)
  1. MYCOPHENOLATE MOFETIL [Interacting]
     Active Substance: MYCOPHENOLATE MOFETIL
     Indication: Immunosuppression
     Dosage: UNK
     Route: 065
  2. MYCOPHENOLATE MOFETIL [Interacting]
     Active Substance: MYCOPHENOLATE MOFETIL
     Dosage: 500 MG, BID
     Route: 065
  3. MYCOPHENOLATE MOFETIL [Interacting]
     Active Substance: MYCOPHENOLATE MOFETIL
     Dosage: 1000 MILLIGRAM, QD
     Route: 065
  4. TACROLIMUS [Interacting]
     Active Substance: TACROLIMUS
     Indication: Immunosuppression
     Dosage: 1 MILLIGRAM, QD
     Route: 065
  5. TACROLIMUS [Interacting]
     Active Substance: TACROLIMUS
     Dosage: 0.5 MILLIGRAM, BID
     Route: 065
  6. METHYLPREDNISOLONE [Interacting]
     Active Substance: METHYLPREDNISOLONE
     Indication: Immunosuppression
     Dosage: UNK
     Route: 042
  7. METHYLPREDNISOLONE [Interacting]
     Active Substance: METHYLPREDNISOLONE
     Indication: Transplant rejection
     Dosage: 4 MG, QD
     Route: 042
  8. METHYLPREDNISOLONE [Interacting]
     Active Substance: METHYLPREDNISOLONE
     Dosage: UNK, 500 MILLIGRAM
     Route: 042
  9. CITALOPRAM [Interacting]
     Active Substance: CITALOPRAM HYDROBROMIDE
     Indication: Product used for unknown indication
     Dosage: UNK
     Route: 065
  10. POSACONAZOLE [Interacting]
     Active Substance: POSACONAZOLE
     Indication: Aspergilloma
     Dosage: 800 MILLIGRAM, QD
     Route: 048
  11. ABELCET [Interacting]
     Active Substance: AMPHOTERICIN B\DIMYRISTOYLPHOSPHATIDYLCHOLINE, DL-\DIMYRISTOYLPHOSPHATIDYLGLYCEROL, DL-
     Indication: Aspergilloma
     Dosage: UNK, 3 MILLIGRAM/KILOGRAM
     Route: 042
  12. ABELCET [Interacting]
     Active Substance: AMPHOTERICIN B\DIMYRISTOYLPHOSPHATIDYLCHOLINE, DL-\DIMYRISTOYLPHOSPHATIDYLGLYCEROL, DL-
     Dosage: UNK, 5 MG/KG
     Route: 042
  13. FENTANYL [Interacting]
     Active Substance: FENTANYL
     Indication: Thoracic vertebral fracture
     Dosage: UNK
     Route: 062
  14. VORICONAZOLE [Interacting]
     Active Substance: VORICONAZOLE
     Indication: Aspergillus infection
     Dosage: 400 MILLIGRAM, QD
     Route: 048

REACTIONS (15)
  - Aspergillus infection [Unknown]
  - Pseudomonas infection [Unknown]
  - Glucose tolerance impaired [Unknown]
  - Abscess jaw [Unknown]
  - Inappropriate antidiuretic hormone secretion [Unknown]
  - Transplant rejection [Unknown]
  - Sinusitis bacterial [Unknown]
  - Aspergilloma [Unknown]
  - Cytomegalovirus viraemia [Unknown]
  - Thoracic vertebral fracture [Unknown]
  - Stupor [Unknown]
  - Hyponatraemia [Unknown]
  - Nephropathy toxic [Unknown]
  - Pneumonia pseudomonal [Unknown]
  - Drug interaction [Unknown]

NARRATIVE: CASE EVENT DATE: 20120101
